FAERS Safety Report 17685989 (Version 1)
Quarter: 2020Q2

REPORT INFORMATION
  Report Type: Report from Study
  Country: IT (occurrence: IT)
  Receive Date: 20200420
  Receipt Date: 20200420
  Transmission Date: 20200714
  Serious: Yes (Hospitalization)
  Sender: FDA-Public Use
  Company Number: IT-TEVA-2020-IT-1225133

PATIENT
  Age: 78 Year
  Sex: Female

DRUGS (9)
  1. XARELTO [Concomitant]
     Active Substance: RIVAROXABAN
  2. ATENOLOL. [Concomitant]
     Active Substance: ATENOLOL
  3. EUTIROX 75 MICROGRAMMI COMPRESSE [Concomitant]
     Active Substance: LEVOTHYROXINE SODIUM
  4. AMOXICILLIN. [Suspect]
     Active Substance: AMOXICILLIN
     Indication: TOOTHACHE
     Dosage: 1 DOSAGE FORMS 1 DAYS
     Route: 048
     Dates: start: 20200113, end: 20200118
  5. LERCADIP 10 MG COMPRESSE RIVESTITE CON FILM [Concomitant]
     Active Substance: LERCANIDIPINE HYDROCHLORIDE
  6. SIVASTIN 20 MG COMPRESSE RIVESTITE CON FILM [Concomitant]
     Active Substance: SIMVASTATIN
  7. FLEIDERINA 100 MG, CAPSULE RIGIDE A RILASCIO PROLUNGATO [Concomitant]
  8. ESOMEPRAZOLE SODIUM. [Concomitant]
     Active Substance: ESOMEPRAZOLE SODIUM
  9. PERINDOPRIL [Concomitant]
     Active Substance: PERINDOPRIL

REACTIONS (3)
  - Rash pruritic [Recovering/Resolving]
  - Erythema [Recovering/Resolving]
  - Rash [Recovering/Resolving]

NARRATIVE: CASE EVENT DATE: 20200117
